FAERS Safety Report 24658214 (Version 1)
Quarter: 2024Q4

REPORT INFORMATION
  Report Type: Spontaneous
  Country: US (occurrence: US)
  Receive Date: 20241125
  Receipt Date: 20241125
  Transmission Date: 20250115
  Serious: Yes (Other)
  Sender: STRIDES
  Company Number: US-STRIDES ARCOLAB LIMITED-2024SP011653

PATIENT
  Age: 45 Year
  Sex: Male

DRUGS (20)
  1. AZATHIOPRINE [Suspect]
     Active Substance: AZATHIOPRINE
     Indication: Scleritis
     Dosage: 2 MILLIGRAM/KILOGRAM, QD (DIVIDED INTO TWICE DAILY DOSING)
     Route: 065
  2. AZATHIOPRINE [Suspect]
     Active Substance: AZATHIOPRINE
     Indication: Eye inflammation
  3. METHOTREXATE [Suspect]
     Active Substance: METHOTREXATE
     Indication: Scleritis
     Dosage: UNK
     Route: 065
  4. METHOTREXATE [Suspect]
     Active Substance: METHOTREXATE
     Indication: Eye inflammation
  5. CYCLOSPORINE [Suspect]
     Active Substance: CYCLOSPORINE
     Indication: Scleritis
     Dosage: 3 MILLIGRAM/KILOGRAM, QD (DIVIDED INTO TWICE DAILY DOSING)
     Route: 065
  6. CYCLOSPORINE [Suspect]
     Active Substance: CYCLOSPORINE
     Indication: Eye inflammation
  7. PREDNISOLONE ACETATE [Suspect]
     Active Substance: PREDNISOLONE ACETATE
     Indication: Scleritis
     Dosage: UNK, QID
     Route: 061
  8. PREDNISOLONE ACETATE [Suspect]
     Active Substance: PREDNISOLONE ACETATE
     Indication: Eye inflammation
  9. VALACYCLOVIR [Suspect]
     Active Substance: VALACYCLOVIR HYDROCHLORIDE
     Indication: Scleritis
     Dosage: 1 GRAM, TID
     Route: 065
  10. VALACYCLOVIR [Suspect]
     Active Substance: VALACYCLOVIR HYDROCHLORIDE
     Indication: Eye inflammation
  11. ADALIMUMAB [Suspect]
     Active Substance: ADALIMUMAB
     Indication: Scleritis
     Dosage: UNK
     Route: 065
  12. ADALIMUMAB [Suspect]
     Active Substance: ADALIMUMAB
     Indication: Eye inflammation
  13. INFLIXIMAB [Suspect]
     Active Substance: INFLIXIMAB
     Indication: Scleritis
     Dosage: UNK
     Route: 065
  14. INFLIXIMAB [Suspect]
     Active Substance: INFLIXIMAB
     Indication: Eye inflammation
  15. RITUXIMAB [Suspect]
     Active Substance: RITUXIMAB
     Indication: Scleritis
     Dosage: UNK
     Route: 065
  16. RITUXIMAB [Suspect]
     Active Substance: RITUXIMAB
     Indication: Eye inflammation
  17. CYCLOPHOSPHAMIDE [Suspect]
     Active Substance: CYCLOPHOSPHAMIDE
     Indication: Scleritis
     Dosage: UNK
     Route: 065
  18. CYCLOPHOSPHAMIDE [Suspect]
     Active Substance: CYCLOPHOSPHAMIDE
     Indication: Eye inflammation
  19. ACTHAR [Suspect]
     Active Substance: CORTICOTROPIN
     Indication: Scleritis
     Dosage: UNK
     Route: 065
  20. ACTHAR [Suspect]
     Active Substance: CORTICOTROPIN
     Indication: Eye inflammation

REACTIONS (3)
  - Drug ineffective [Unknown]
  - Disease recurrence [Unknown]
  - Off label use [Unknown]
